FAERS Safety Report 9290711 (Version 1)
Quarter: 2013Q2

REPORT INFORMATION
  Report Type: Spontaneous
  Country: US (occurrence: None)
  Receive Date: 20130513
  Receipt Date: 20130513
  Transmission Date: 20140414
  Serious: Yes (Death, Hospitalization, Other)
  Sender: FDA-Public Use
  Company Number: 2013P1005508

PATIENT
  Age: 69 Year
  Sex: Female
  Weight: 63.59 kg

DRUGS (13)
  1. PLAQUENIL [Suspect]
     Indication: UTERINE LEIOMYOSARCOMA
     Dosage: 200 MG ; BID; PO
     Route: 048
     Dates: start: 20120130, end: 20120205
  2. SUTENT [Suspect]
     Indication: UTERINE LEIOMYOSARCOMA
     Dosage: 50 MG; QD; PO
     Route: 048
     Dates: start: 20120130, end: 20120205
  3. IV CONSTRAST DYE [Suspect]
     Dosage: ;IV
     Route: 042
     Dates: start: 20130207, end: 20130207
  4. TOPROL XL (METOPROLOL SUCCINATE) [Concomitant]
  5. COLACE [Concomitant]
  6. MULTIVITAMIN [Concomitant]
  7. LEVOTHYROXINE SODIUM (LEVOXYL) [Concomitant]
  8. AMLODIPINE BESILATE (NORVASC) [Concomitant]
  9. ONDANSETRON [Concomitant]
  10. MAGNESIUM OXIDE [Concomitant]
  11. ROSUVASTATIN (CRESTOR) [Concomitant]
  12. METFORMIN HYDROCHLORIDE (GLUCOPHAGE) [Concomitant]
  13. HYDROCHLOROTHIAZIDE/LOSARTAN POTASSIUM (HYZAAR) [Concomitant]

REACTIONS (19)
  - Nausea [None]
  - Vomiting [None]
  - Fatigue [None]
  - Abdominal pain [None]
  - Constipation [None]
  - Delirium [None]
  - Ascites [None]
  - Phlebolith [None]
  - Leiomyosarcoma [None]
  - Malignant neoplasm progression [None]
  - Pleural effusion [None]
  - Metastatic neoplasm [None]
  - Renal failure acute [None]
  - Cerebral disorder [None]
  - Azotaemia [None]
  - Lymphocyte count decreased [None]
  - Haemoglobin decreased [None]
  - Pelvic neoplasm [None]
  - Abdominal neoplasm [None]
